FAERS Safety Report 4542820-9 (Version None)
Quarter: 2004Q4

REPORT INFORMATION
  Report Type: 
  Country: None (occurrence: None)
  Receive Date: 20041229
  Receipt Date: 20041217
  Transmission Date: 20050328
  Serious: Yes (Life-Threatening, Other)
  Sender: FDA-Public Use
  Company Number: 211233

PATIENT
  Age: 18 Year
  Sex: Male
  Weight: 82.1 kg

DRUGS (5)
  1. NUTROPIN [Suspect]
     Indication: CRANIOPHARYNGIOMA
     Dosage: 2 MG, QD, SUBCUTANEOUS
     Route: 058
     Dates: start: 20001109
  2. ZOLOFT [Concomitant]
  3. CORTEF (HYDROCORTISONE0 [Concomitant]
  4. LEVOXYL [Concomitant]
  5. DDAVP (DESMOPRESSIN ACETATE) [Concomitant]

REACTIONS (2)
  - CRANIOPHARYNGIOMA [None]
  - NEOPLASM RECURRENCE [None]
